FAERS Safety Report 17393814 (Version 4)
Quarter: 2020Q2

REPORT INFORMATION
  Report Type: Spontaneous
  Country: US (occurrence: US)
  Receive Date: 20200209
  Receipt Date: 20200514
  Transmission Date: 20200713
  Serious: Yes (Other)
  Sender: FDA-Public Use
  Company Number: US-GLAXOSMITHKLINE-US2020AMR019917

PATIENT
  Sex: Female
  Weight: 87 kg

DRUGS (1)
  1. BENLYSTA [Suspect]
     Active Substance: BELIMUMAB
     Indication: SYSTEMIC LUPUS ERYTHEMATOSUS
     Dosage: UNK
     Route: 042
     Dates: end: 20191203

REACTIONS (11)
  - Abortion spontaneous [Unknown]
  - Dysphonia [Unknown]
  - Upper respiratory tract infection [Unknown]
  - Exposure during pregnancy [Unknown]
  - Pyrexia [Unknown]
  - Uterine dilation and curettage [Unknown]
  - Arthralgia [Unknown]
  - Hypoacusis [Unknown]
  - Laryngitis [Unknown]
  - Ill-defined disorder [Unknown]
  - Cough [Unknown]

NARRATIVE: CASE EVENT DATE: 2020
